FAERS Safety Report 20665325 (Version 6)
Quarter: 2022Q2

REPORT INFORMATION
  Report Type: Spontaneous
  Country: GB (occurrence: GB)
  Receive Date: 20220401
  Receipt Date: 20220629
  Transmission Date: 20220721
  Serious: Yes (Death, Other)
  Sender: FDA-Public Use
  Company Number: None

PATIENT
  Age: 64 Year
  Sex: Female

DRUGS (45)
  1. DOXORUBICIN [Suspect]
     Active Substance: DOXORUBICIN
     Indication: Diffuse large B-cell lymphoma
     Dosage: INDICATION LARGE B CELL LYMPHOMA OF KIDNEY
     Route: 065
     Dates: start: 20071219, end: 20080518
  2. DOXORUBICIN [Suspect]
     Active Substance: DOXORUBICIN
     Indication: Non-Hodgkin^s lymphoma
     Dosage: UNK
     Route: 065
     Dates: start: 20080301, end: 20080301
  3. CYCLOPHOSPHAMIDE [Suspect]
     Active Substance: CYCLOPHOSPHAMIDE
     Indication: Non-Hodgkin^s lymphoma
     Dosage: UNK, DOSAGE FORM: TABLET, INDICATION LARGE B CELL LYMPHOMA OF KIDNEY
     Route: 065
     Dates: start: 20071219, end: 20080518
  4. CYCLOPHOSPHAMIDE [Suspect]
     Active Substance: CYCLOPHOSPHAMIDE
     Indication: Diffuse large B-cell lymphoma
     Dosage: UNK,
     Route: 065
     Dates: start: 20080301, end: 20080301
  5. PREDNISONE [Suspect]
     Active Substance: PREDNISONE
     Indication: Diffuse large B-cell lymphoma
     Dosage: INDICATION LARGE B CELL LYMPHOMA OF KIDNEY
     Route: 065
     Dates: start: 20071219, end: 20080518
  6. PREDNISONE [Suspect]
     Active Substance: PREDNISONE
     Indication: Diffuse large B-cell lymphoma
     Dosage: UNK, START DATE: 01-MAR-2008
     Route: 065
     Dates: start: 20080301, end: 20080301
  7. PREDNISONE [Suspect]
     Active Substance: PREDNISONE
     Indication: Non-Hodgkin^s lymphoma
  8. PREDNISONE [Suspect]
     Active Substance: PREDNISONE
     Indication: Inflammation
  9. VINCRISTINE SULFATE [Suspect]
     Active Substance: VINCRISTINE SULFATE
     Indication: Diffuse large B-cell lymphoma
     Dosage: UNK, SOLUTION FOR INJECTION, INDICATION LARGE B CELL LYMPHOMA OF KIDNEY
     Route: 065
     Dates: start: 20071219, end: 20080518
  10. VINCRISTINE SULFATE [Suspect]
     Active Substance: VINCRISTINE SULFATE
     Indication: Non-Hodgkin^s lymphoma
     Dosage: UNK, SOLUTION FOR INJECTION
     Route: 065
     Dates: start: 20080301, end: 20080301
  11. RITUXIMAB [Suspect]
     Active Substance: RITUXIMAB
     Indication: Diffuse large B-cell lymphoma
     Dosage: STRENGTH: 500MG AND 2X 100MG
     Route: 065
     Dates: start: 20071219, end: 20080518
  12. RITUXIMAB [Suspect]
     Active Substance: RITUXIMAB
     Indication: Diffuse large B-cell lymphoma
     Dosage: STRENGTH: 500MG AND 2X 100MG
     Route: 065
  13. RITUXIMAB [Suspect]
     Active Substance: RITUXIMAB
     Indication: Non-Hodgkin^s lymphoma
     Dosage: UNK, START DATE: 01-MAR-2008
     Route: 065
     Dates: start: 20080301, end: 20080301
  14. RITUXIMAB [Suspect]
     Active Substance: RITUXIMAB
     Dosage: UNK
     Route: 065
     Dates: start: 20080301, end: 20080301
  15. RITUXIMAB [Suspect]
     Active Substance: RITUXIMAB
     Dosage: UNK
     Route: 065
     Dates: start: 20080301, end: 20080301
  16. RITUXIMAB [Suspect]
     Active Substance: RITUXIMAB
     Dosage: UNK
     Route: 065
     Dates: start: 20080301, end: 20080301
  17. RITUXIMAB [Suspect]
     Active Substance: RITUXIMAB
     Dosage: UNK
     Route: 065
     Dates: start: 20080301, end: 20080301
  18. RITUXIMAB [Suspect]
     Active Substance: RITUXIMAB
     Dosage: UNK
     Route: 065
     Dates: start: 20080301, end: 20080301
  19. RITUXIMAB [Suspect]
     Active Substance: RITUXIMAB
     Dosage: UNK
     Route: 065
     Dates: start: 20080301, end: 20080301
  20. RITUXIMAB [Suspect]
     Active Substance: RITUXIMAB
     Dosage: STRENGTH: 500MG AND 2X 100MG
     Route: 065
     Dates: start: 200812
  21. RITUXIMAB [Suspect]
     Active Substance: RITUXIMAB
     Dosage: UNK
     Route: 065
     Dates: start: 200803, end: 20080518
  22. RITUXIMAB [Suspect]
     Active Substance: RITUXIMAB
     Dosage: UNK
     Route: 065
  23. METHOTREXATE [Suspect]
     Active Substance: METHOTREXATE
     Indication: Non-Hodgkin^s lymphoma
     Dosage: 12.5 MILLIGRAM,PRN
     Route: 065
     Dates: end: 20080312
  24. METHOTREXATE [Suspect]
     Active Substance: METHOTREXATE
     Indication: Diffuse large B-cell lymphoma
     Dosage: 12.5 MILLIGRAM,3X A DAY
     Route: 039
     Dates: start: 20080314, end: 20080518
  25. METHOTREXATE [Suspect]
     Active Substance: METHOTREXATE
     Dosage: 12.5 MILLIGRAM, 12.5 MG, UNK, SOLUTION FOR INJECTION
     Route: 039
     Dates: end: 20080301
  26. METHOTREXATE [Suspect]
     Active Substance: METHOTREXATE
     Dosage: 12.5 UNK, SOLUTION FOR INJECTION
     Route: 037
     Dates: end: 20080313
  27. METHOTREXATE [Suspect]
     Active Substance: METHOTREXATE
     Route: 065
     Dates: end: 20080312
  28. LEUCOVORIN CALCIUM [Concomitant]
     Active Substance: LEUCOVORIN CALCIUM
     Indication: Product used for unknown indication
     Dosage: 15 DOSAGE FORM, 15 DF, FREQ: UNK
     Route: 065
  29. SULFAMETHOXAZOLE [Concomitant]
     Active Substance: SULFAMETHOXAZOLE
     Indication: Product used for unknown indication
     Dosage: UNK
     Route: 065
  30. SULFAMETHOXAZOLE [Concomitant]
     Active Substance: SULFAMETHOXAZOLE
     Dosage: UNK
     Route: 065
  31. FLUCONAZOLE [Concomitant]
     Active Substance: FLUCONAZOLE
     Indication: Product used for unknown indication
     Dosage: 50 DOSAGE FORM, QD, 50 DF, FREQ: ONCE DAILY
     Route: 065
  32. FLUCONAZOLE [Concomitant]
     Active Substance: FLUCONAZOLE
     Dosage: UNK
     Route: 065
  33. AMLODIPINE [Concomitant]
     Active Substance: AMLODIPINE BESYLATE
     Indication: Product used for unknown indication
     Dosage: UNK
     Route: 065
  34. AMLODIPINE [Concomitant]
     Active Substance: AMLODIPINE BESYLATE
     Dosage: UNK
     Route: 065
  35. LEUCOVORIN [Concomitant]
     Active Substance: LEUCOVORIN
     Indication: Product used for unknown indication
     Dosage: UNK
     Route: 065
  36. LEUCOVORIN [Concomitant]
     Active Substance: LEUCOVORIN
     Dosage: UNK
     Route: 065
  37. LANSOPRAZOLE [Concomitant]
     Active Substance: LANSOPRAZOLE
     Indication: Product used for unknown indication
     Dosage: 50 DOSAGE FORM, QD, 50 DOSAGE FORM, 50 DF, FREQ: ONCE DAILY
     Route: 065
  38. LANSOPRAZOLE [Concomitant]
     Active Substance: LANSOPRAZOLE
     Dosage: UNK
     Route: 065
  39. TRIMETHOPRIM [Concomitant]
     Active Substance: TRIMETHOPRIM
     Indication: Product used for unknown indication
     Dosage: 960 DOSAGE FORM, BID, 960 DF, FREQ: TWICE A DAY
     Route: 065
  40. SIMVASTATIN [Concomitant]
     Active Substance: SIMVASTATIN
     Indication: Product used for unknown indication
     Dosage: 20 DOSAGE FORM, 20 DF, FREQ: UNK
     Route: 065
  41. SIMVASTATIN [Concomitant]
     Active Substance: SIMVASTATIN
     Dosage: UNK
     Route: 065
  42. GANCICLOVIR [Concomitant]
     Active Substance: GANCICLOVIR
     Indication: Product used for unknown indication
     Dosage: 150 DOSAGE FORM, QD, 150 DF, FREQ: ONCE DAILY
     Route: 065
  43. GANCICLOVIR [Concomitant]
     Active Substance: GANCICLOVIR
     Dosage: UNK
     Route: 065
  44. COTRIMOXAZOLE [Concomitant]
     Active Substance: SULFAMETHOXAZOLE\TRIMETHOPRIM
     Indication: Product used for unknown indication
     Dosage: 960 DF, BID
     Route: 065
  45. COTRIMOXAZOLE [Concomitant]
     Active Substance: SULFAMETHOXAZOLE\TRIMETHOPRIM
     Dosage: 1920 DF, BID (960 DF, 2X/DAY)
     Route: 065

REACTIONS (5)
  - Leukoencephalopathy [Fatal]
  - Progressive multifocal leukoencephalopathy [Fatal]
  - Amnesia [Not Recovered/Not Resolved]
  - Ataxia [Not Recovered/Not Resolved]
  - Apraxia [Not Recovered/Not Resolved]

NARRATIVE: CASE EVENT DATE: 20080101
